FAERS Safety Report 7271963-4 (Version None)
Quarter: 2011Q1

REPORT INFORMATION
  Report Type: 
  Country: None (occurrence: None)
  Receive Date: 20110203
  Receipt Date: 20110124
  Transmission Date: 20110831
  Serious: Yes (Death)
  Sender: FDA-Public Use
  Company Number: JP-SANOFI-AVENTIS-2011SA005963

PATIENT
  Age: 66 Year
  Sex: Male
  Weight: 50 kg

DRUGS (11)
  1. ELPLAT [Suspect]
     Route: 041
     Dates: start: 20110105, end: 20110105
  2. CALCICOL [Concomitant]
     Indication: PREMEDICATION
     Route: 041
     Dates: start: 20101215, end: 20110105
  3. GASTER [Concomitant]
     Indication: PREMEDICATION
     Route: 041
     Dates: start: 20101215, end: 20110105
  4. GRANISETRON HCL [Concomitant]
     Indication: PREMEDICATION
     Route: 041
     Dates: start: 20101215, end: 20110105
  5. 5-FU [Concomitant]
     Route: 041
     Dates: start: 20101215, end: 20110105
  6. ELPLAT [Suspect]
     Indication: LARGE INTESTINE CARCINOMA
     Route: 041
     Dates: start: 20101215, end: 20101215
  7. CALCIUM LEVOFOLINATE [Concomitant]
     Indication: LARGE INTESTINE CARCINOMA
     Route: 041
     Dates: start: 20101215, end: 20110105
  8. MAGNESIUM SULFATE [Concomitant]
     Indication: PREMEDICATION
     Route: 041
     Dates: start: 20101215, end: 20110105
  9. DEXAMETHASONE SODIUM PHOSPHATE [Concomitant]
     Indication: PREMEDICATION
     Route: 041
     Dates: start: 20101215, end: 20110105
  10. 5-FU [Concomitant]
     Indication: LARGE INTESTINE CARCINOMA
     Route: 040
     Dates: start: 20101215, end: 20110105
  11. CHLOR-TRIMETON [Concomitant]
     Indication: PREMEDICATION
     Route: 041
     Dates: start: 20101215, end: 20110105

REACTIONS (1)
  - MYOCARDIAL INFARCTION [None]
